FAERS Safety Report 8339835-1 (Version None)
Quarter: 2012Q2

REPORT INFORMATION
  Report Type: 
  Country: None (occurrence: None)
  Receive Date: 20120507
  Receipt Date: 20120502
  Transmission Date: 20120825
  Serious: Yes (Hospitalization, Other)
  Sender: FDA-Public Use
  Company Number: US-PFIZER INC-2011167357

PATIENT
  Sex: Female
  Weight: 73 kg

DRUGS (3)
  1. TYLENOL (CAPLET) [Concomitant]
     Dosage: UNK
  2. LIPITOR [Suspect]
     Indication: BLOOD CHOLESTEROL INCREASED
     Dosage: 10 MG, 1X/DAY
     Route: 048
     Dates: start: 20070101
  3. NAPROXEN (ALEVE) [Concomitant]
     Dosage: UNK

REACTIONS (2)
  - ARTHROPATHY [None]
  - THROMBOSIS [None]
